FAERS Safety Report 4629165-3 (Version None)
Quarter: 2005Q2

REPORT INFORMATION
  Report Type: 
  Country: None (occurrence: None)
  Receive Date: 20050407
  Receipt Date: 20050324
  Transmission Date: 20051028
  Serious: Yes (Other)
  Sender: FDA-Public Use
  Company Number: AU-JNJFOC-20050400710

PATIENT
  Sex: Male

DRUGS (9)
  1. TRAMADOL HCL [Suspect]
     Indication: PAIN
     Route: 065
  2. OXYCONTIN [Concomitant]
     Indication: BACK PAIN
     Route: 049
  3. CIPROFLOXACIN [Concomitant]
     Route: 049
  4. METOPROLOL TARTRATE [Concomitant]
     Route: 049
  5. CENTRUM [Concomitant]
     Route: 049
  6. CENTRUM [Concomitant]
     Route: 049
  7. COLOXYL WITH SENNA [Concomitant]
     Route: 049
  8. COLOXYL WITH SENNA [Concomitant]
     Route: 049
  9. LACTOSE [Concomitant]
     Route: 049

REACTIONS (2)
  - DELIRIUM [None]
  - URINARY RETENTION [None]
